FAERS Safety Report 7927991-6 (Version None)
Quarter: 2011Q4

REPORT INFORMATION
  Report Type: 
  Country: None (occurrence: None)
  Receive Date: 20111118
  Receipt Date: 20111109
  Transmission Date: 20120403
  Serious: Yes (Hospitalization, Other)
  Sender: FDA-Public Use
  Company Number: US-BAYER-2011-038758

PATIENT
  Age: 18 Year
  Sex: Female

DRUGS (5)
  1. NAPROXEN (ALEVE) [Concomitant]
  2. IBUPROFEN [Concomitant]
  3. YAZ [Suspect]
     Indication: ORAL CONTRACEPTION
     Dosage: UNK
     Dates: start: 20080601, end: 20090701
  4. LEVOTHYROXINE SODIUM [Concomitant]
     Indication: HYPOTHYROIDISM
     Dosage: UNK
     Route: 048
     Dates: start: 20031001
  5. PREDNISONE TAB [Concomitant]
     Dosage: 40 MG, QD
     Route: 048
     Dates: start: 20090512

REACTIONS (3)
  - CHOLECYSTITIS ACUTE [None]
  - PAIN [None]
  - GALLBLADDER DISORDER [None]
